FAERS Safety Report 19401763 (Version 4)
Quarter: 2021Q4

REPORT INFORMATION
  Report Type: Spontaneous
  Country: IN (occurrence: IN)
  Receive Date: 20210611
  Receipt Date: 20211108
  Transmission Date: 20220303
  Serious: Yes (Other)
  Sender: FDA-Public Use
  Company Number: IN-CIPLA LTD.-2021IN03971

PATIENT

DRUGS (6)
  1. ALBUTEROL [Suspect]
     Active Substance: ALBUTEROL
     Indication: Asthma
     Dosage: 3-5 PUFFS DAILY, PRN
     Route: 065
     Dates: start: 1990
  2. ALBUTEROL [Suspect]
     Active Substance: ALBUTEROL
     Dosage: 3-5 PUFFS DAILY, PRN
     Route: 065
  3. ALBUTEROL [Suspect]
     Active Substance: ALBUTEROL
     Dosage: 3-5 PUFFS DAILY, PRN
     Route: 065
  4. ALBUTEROL [Suspect]
     Active Substance: ALBUTEROL
     Dosage: 3-5 PUFFS DAILY, PRN
     Route: 065
  5. ALBUTEROL [Suspect]
     Active Substance: ALBUTEROL
     Dosage: 2 DOSES PER DAY
     Route: 065
  6. AMLOVAS [Concomitant]
     Indication: Blood pressure abnormal
     Dosage: UNK, QD, ONCE A DAY, SINCE 4 YEARS
     Route: 065

REACTIONS (2)
  - Drug ineffective [Recovered/Resolved]
  - Device delivery system issue [Unknown]

NARRATIVE: CASE EVENT DATE: 20210530
